FAERS Safety Report 11061537 (Version 1)
Quarter: 2015Q2

REPORT INFORMATION
  Report Type: Spontaneous
  Country: US (occurrence: US)
  Receive Date: 20150424
  Receipt Date: 20150424
  Transmission Date: 20150821
  Serious: No
  Sender: FDA-Public Use
  Company Number: US-PFIZER INC-2015133013

PATIENT
  Age: 19 Year
  Sex: Female
  Weight: 141 kg

DRUGS (3)
  1. EFFEXOR XR [Suspect]
     Active Substance: VENLAFAXINE HYDROCHLORIDE
     Dosage: 37.5 MG, UNK
     Dates: start: 2014
  2. KLONOPIN [Concomitant]
     Active Substance: CLONAZEPAM
     Dosage: UNK
  3. EFFEXOR XR [Suspect]
     Active Substance: VENLAFAXINE HYDROCHLORIDE
     Dosage: 300 MG, 1X/DAY, (TAKES TWO 150 MG CAPSULES EVERY MORNING ABOUT 9^O CLOCK IN THE MORNING)
     Dates: start: 2014

REACTIONS (5)
  - Emotional disorder [Unknown]
  - Depression [Unknown]
  - Drug ineffective [Unknown]
  - Disturbance in attention [Unknown]
  - Insomnia [Unknown]
